FAERS Safety Report 17344646 (Version 1)
Quarter: 2020Q1

REPORT INFORMATION
  Report Type: Spontaneous
  Country: US (occurrence: US)
  Receive Date: 20200129
  Receipt Date: 20200129
  Transmission Date: 20200409
  Serious: No
  Sender: FDA-Public Use
  Company Number: US-ALLERGAN-1942777US

PATIENT
  Age: 25 Year
  Sex: Female

DRUGS (2)
  1. METFORMIN [Concomitant]
     Active Substance: METFORMIN HYDROCHLORIDE
     Dosage: UNK
  2. BOTOX [Suspect]
     Active Substance: ONABOTULINUMTOXINA
     Indication: MIGRAINE
     Dosage: 155 UNITS, SINGLE
     Dates: start: 20191002, end: 20191002

REACTIONS (7)
  - Throat tightness [Recovering/Resolving]
  - Ear pain [Recovering/Resolving]
  - Muscle spasms [Recovering/Resolving]
  - Neck pain [Recovering/Resolving]
  - Pain in jaw [Recovering/Resolving]
  - Rash [Recovering/Resolving]
  - Adverse event [Recovering/Resolving]

NARRATIVE: CASE EVENT DATE: 201910
